FAERS Safety Report 9321373 (Version 3)
Quarter: 2014Q2

REPORT INFORMATION
  Report Type: Spontaneous
  Country: IT (occurrence: IT)
  Receive Date: 20130531
  Receipt Date: 20140403
  Transmission Date: 20141212
  Serious: Yes (Hospitalization)
  Sender: FDA-Public Use
  Company Number: IT-PFIZER INC-2013164812

PATIENT
  Age: 80 Year
  Sex: Female

DRUGS (4)
  1. CORDARONE [Suspect]
     Indication: ARRHYTHMIA PROPHYLAXIS
     Dosage: 400 MG, ONCE DAILY
     Route: 048
     Dates: start: 20130130, end: 20130325
  2. CORDARONE [Suspect]
     Indication: ATRIAL FIBRILLATION
     Dosage: 800 MG, DAILY
     Route: 042
     Dates: start: 20130129, end: 20130129
  3. DILZENE [Concomitant]
     Dosage: UNK
     Dates: start: 20130101, end: 20130523
  4. COUMADIN [Concomitant]
     Indication: THROMBOSIS PROPHYLAXIS
     Dosage: UNK
     Dates: start: 20130101, end: 20130523

REACTIONS (1)
  - Jaundice cholestatic [Recovering/Resolving]
